FAERS Safety Report 24659888 (Version 2)
Quarter: 2024Q4

REPORT INFORMATION
  Report Type: Spontaneous
  Country: US (occurrence: US)
  Receive Date: 20241125
  Receipt Date: 20241216
  Transmission Date: 20250115
  Serious: No
  Sender: BAYER HEALTHCARE PHARMACEUTICALS INC.
  Company Number: US-BAYER-2024A164576

PATIENT
  Sex: Female

DRUGS (3)
  1. ESTRADIOL [Suspect]
     Active Substance: ESTRADIOL
     Dosage: 0.1MG/1D
     Dates: start: 202405
  2. ESTRADIOL [Concomitant]
     Active Substance: ESTRADIOL
     Dosage: .001%
  3. SUMATRIPTAN [Concomitant]
     Active Substance: SUMATRIPTAN
     Indication: Migraine
     Dosage: 100 MG

REACTIONS (7)
  - Device adhesion issue [None]
  - Dry skin [None]
  - Wrong technique in device usage process [None]
  - Product dose omission issue [None]
  - Hot flush [None]
  - Headache [None]
  - Fatigue [None]

NARRATIVE: CASE EVENT DATE: 20240501
